FAERS Safety Report 7020286-7 (Version None)
Quarter: 2010Q3

REPORT INFORMATION
  Report Type: 
  Country: None (occurrence: None)
  Receive Date: 20100929
  Receipt Date: 20100920
  Transmission Date: 20110219
  Serious: Yes (Hospitalization)
  Sender: FDA-Public Use
  Company Number: PHHY2010FR60552

PATIENT
  Sex: Female

DRUGS (5)
  1. RASILEZ [Suspect]
     Dosage: 300 MG, QD
     Dates: start: 20100401, end: 20100613
  2. TAREG [Interacting]
     Dosage: 80 MG, QD
     Route: 048
     Dates: end: 20100613
  3. AMLODIPINE [Interacting]
     Indication: HYPERTENSION
     Dosage: 5 MG, QD
     Route: 048
  4. PLAVIX [Concomitant]
     Dosage: 75 MG, QD
  5. AMITRIPTYLINE HCL [Concomitant]
     Dosage: 1 DF, QD
     Route: 048

REACTIONS (7)
  - ABNORMAL BEHAVIOUR [None]
  - DECREASED APPETITE [None]
  - DRUG INTERACTION [None]
  - FATIGUE [None]
  - GENERAL PHYSICAL HEALTH DETERIORATION [None]
  - HYPOALBUMINAEMIA [None]
  - HYPONATRAEMIA [None]
